FAERS Safety Report 9345394 (Version 1)
Quarter: 2013Q2

REPORT INFORMATION
  Report Type: Spontaneous
  Country: FR (occurrence: FR)
  Receive Date: 20130613
  Receipt Date: 20130613
  Transmission Date: 20140414
  Serious: Yes (Life-Threatening)
  Sender: FDA-Public Use
  Company Number: FR-ROCHE-1234340

PATIENT
  Age: 48 Year
  Sex: Male

DRUGS (4)
  1. VALIUM [Suspect]
     Indication: PRODUCT USED FOR UNKNOWN INDICATION
     Route: 048
     Dates: start: 201204, end: 20120821
  2. LAROXYL [Suspect]
     Indication: PRODUCT USED FOR UNKNOWN INDICATION
     Route: 048
     Dates: start: 201204, end: 20120821
  3. BACLOFENE [Suspect]
     Indication: ALCOHOLISM
     Route: 065
     Dates: start: 201204, end: 20120821
  4. PROZAC [Suspect]
     Indication: PRODUCT USED FOR UNKNOWN INDICATION
     Route: 048
     Dates: start: 201204, end: 20120821

REACTIONS (1)
  - Coma [Recovered/Resolved]
